FAERS Safety Report 9315954 (Version 1)
Quarter: 2013Q2

REPORT INFORMATION
  Report Type: Spontaneous
  Country: US (occurrence: US)
  Receive Date: 20130530
  Receipt Date: 20130530
  Transmission Date: 20140414
  Serious: Yes (Other)
  Sender: FDA-Public Use
  Company Number: US-BIOGENIDEC-2013BI045887

PATIENT
  Age: 47 Year
  Sex: Male

DRUGS (3)
  1. TYSABRI [Suspect]
     Indication: MULTIPLE SCLEROSIS
     Route: 042
     Dates: start: 20100630, end: 20120530
  2. TYSABRI [Suspect]
     Indication: MULTIPLE SCLEROSIS
     Route: 042
     Dates: start: 20121220
  3. FAMPYRA [Concomitant]
     Indication: MULTIPLE SCLEROSIS
     Dates: start: 20130417

REACTIONS (3)
  - Convulsion [Recovered/Resolved]
  - Fatigue [Not Recovered/Not Resolved]
  - Urine odour abnormal [Not Recovered/Not Resolved]
